FAERS Safety Report 7270842-6 (Version None)
Quarter: 2011Q1

REPORT INFORMATION
  Report Type: 
  Country: None (occurrence: None)
  Receive Date: 20110202
  Receipt Date: 20110119
  Transmission Date: 20110831
  Serious: Yes (Death, Other)
  Sender: FDA-Public Use
  Company Number: US-CELGENEUS-163-20785-10120811

PATIENT
  Sex: Female

DRUGS (24)
  1. COLACE [Concomitant]
     Route: 065
  2. VALIUM [Concomitant]
     Route: 065
  3. XALATAN [Concomitant]
     Route: 065
  4. ZOFRAN [Concomitant]
     Route: 065
  5. ATIVAN [Concomitant]
     Route: 065
  6. THALOMID [Suspect]
     Indication: MULTIPLE MYELOMA
     Route: 048
     Dates: start: 20100908, end: 20101101
  7. M.V.I. [Concomitant]
     Route: 065
  8. TRUSOPT [Concomitant]
     Route: 065
  9. NEURONTIN [Concomitant]
     Route: 065
  10. SPIRIVA [Concomitant]
     Route: 065
  11. TIMENTIN [Concomitant]
     Route: 065
  12. HEPARIN [Concomitant]
     Indication: PROPHYLAXIS
     Route: 058
  13. CARAFATE [Concomitant]
     Route: 065
  14. REGLAN [Concomitant]
     Route: 065
  15. ASPIRIN [Concomitant]
     Route: 065
     Dates: start: 20100901
  16. MEGACE [Concomitant]
     Route: 065
  17. REMERON [Concomitant]
     Route: 065
  18. DECADRON [Concomitant]
     Route: 065
  19. PRILOSEC [Concomitant]
     Route: 065
  20. SPIRONOLACTONE [Concomitant]
     Route: 065
  21. COUMADIN [Concomitant]
     Indication: PROPHYLAXIS
     Route: 065
  22. HALDOL [Concomitant]
     Route: 065
  23. MIRALAX [Concomitant]
     Route: 065
  24. ZOLOFT [Concomitant]
     Route: 065

REACTIONS (1)
  - SILENT MYOCARDIAL INFARCTION [None]
